FAERS Safety Report 5589567-8 (Version None)
Quarter: 2007Q4

REPORT INFORMATION
  Report Type: 
  Country: None (occurrence: None)
  Receive Date: 20071210
  Receipt Date: 20070801
  Transmission Date: 20080405
  Serious: Yes (Other)
  Sender: FDA-Public Use
  Company Number: 509813

PATIENT
  Age: 59 Year
  Sex: Female

DRUGS (1)
  1. VALIUM [Suspect]
     Indication: ANXIETY
     Dosage: 5 MG 3 PER DAY
     Dates: start: 19900615

REACTIONS (2)
  - CONVULSION [None]
  - DEPENDENCE [None]
